FAERS Safety Report 5727258-0 (Version None)
Quarter: 2008Q2

REPORT INFORMATION
  Report Type: 
  Country: None (occurrence: None)
  Receive Date: 20080505
  Receipt Date: 20080428
  Transmission Date: 20081010
  Serious: Yes (Other)
  Sender: FDA-Public Use
  Company Number: CA-BAYER-200816530NA

PATIENT
  Age: 83 Year
  Sex: Female

DRUGS (1)
  1. AVELOX [Suspect]
     Indication: COUGH
     Dosage: TOTAL DAILY DOSE: 400 MG  UNIT DOSE: 400 MG
     Route: 048
     Dates: start: 20060401

REACTIONS (6)
  - ARTHRALGIA [None]
  - BLINDNESS UNILATERAL [None]
  - CORNEAL OEDEMA [None]
  - EYE SWELLING [None]
  - OCULAR HYPERAEMIA [None]
  - OCULAR ICTERUS [None]
